FAERS Safety Report 19633054 (Version 1)
Quarter: 2021Q3

REPORT INFORMATION
  Report Type: Spontaneous
  Country: JP (occurrence: JP)
  Receive Date: 20210730
  Receipt Date: 20210730
  Transmission Date: 20211014
  Serious: Yes (Other)
  Sender: FDA-Public Use
  Company Number: JP-SUN PHARMACEUTICAL INDUSTRIES LTD-2021RR-305958

PATIENT
  Age: 71 Year
  Sex: Female

DRUGS (5)
  1. ESZOPICLONE. [Suspect]
     Active Substance: ESZOPICLONE
     Indication: NIGHTMARE
     Dosage: 2 MILLIGRAM, DAILY, PER NIGHT
     Route: 065
  2. RISPERIDONE. [Suspect]
     Active Substance: RISPERIDONE
     Indication: NIGHTMARE
     Dosage: 1 MILLIGRAM, DAILY
     Route: 065
  3. DOXAZOSIN [Suspect]
     Active Substance: DOXAZOSIN MESYLATE
     Indication: HYPERTENSION
     Dosage: 1 MILLIGRAM, DAILY
     Route: 065
  4. TRAZODONE [Suspect]
     Active Substance: TRAZODONE HYDROCHLORIDE
     Indication: NIGHTMARE
     Dosage: 50 MILLIGRAM, DAILY, PER NIGHT
     Route: 065
  5. DOXAZOSIN [Suspect]
     Active Substance: DOXAZOSIN MESYLATE
     Indication: HYPERTENSION
     Dosage: 0.5 MILLIGRAM, DAILY
     Route: 065

REACTIONS (3)
  - Extrapyramidal disorder [Unknown]
  - Therapeutic response unexpected [Unknown]
  - Drug ineffective [Unknown]
